FAERS Safety Report 5070201-0 (Version None)
Quarter: 2006Q3

REPORT INFORMATION
  Report Type: 
  Country: None (occurrence: None)
  Receive Date: 20060714
  Receipt Date: 20060409
  Transmission Date: 20061208
  Serious: No
  Sender: FDA-Public Use
  Company Number: 2006SP001616

PATIENT
  Age: 36 Year
  Sex: Female
  Weight: 79.8331 kg

DRUGS (4)
  1. LUNESTA [Suspect]
     Indication: INSOMNIA
     Dosage: 3 MG;HS;ORAL
     Route: 048
     Dates: start: 20060405
  2. SEROQUEL [Concomitant]
  3. ACTONEL [Concomitant]
  4. EFFEXOR [Concomitant]

REACTIONS (1)
  - DYSGEUSIA [None]
